FAERS Safety Report 6881472-X (Version None)
Quarter: 2010Q3

REPORT INFORMATION
  Report Type: 
  Country: None (occurrence: None)
  Receive Date: 20100728
  Receipt Date: 20100723
  Transmission Date: 20110219
  Serious: Yes (Death, Hospitalization, Other)
  Sender: FDA-Public Use
  Company Number: IT-BRISTOL-MYERS SQUIBB COMPANY-15126790

PATIENT
  Age: 84 Year
  Sex: Male

DRUGS (4)
  1. COUMADIN [Suspect]
     Indication: ISCHAEMIC HEART DISEASE PROPHYLAXIS
     Dosage: 1 DF - 1 POSOLOGIC UNIT;INTERRUPTED ON 29JAN2010;
     Route: 048
     Dates: start: 20100101
  2. LANOXIN [Concomitant]
     Dosage: TABS;ALSO TAKEN 0,250MG;
     Route: 048
  3. LASIX [Concomitant]
     Dosage: 1 DF -1/2 POSOLOGIC UNIT
     Route: 048
  4. TEGRETOL [Concomitant]
     Indication: EPILEPSY
     Dosage: TABS;ALSO TAKEN 400MG
     Route: 048

REACTIONS (11)
  - ANAEMIA [None]
  - ASTHENIA [None]
  - ATRIAL FIBRILLATION [None]
  - BRONCHOPNEUMONIA [None]
  - BUNDLE BRANCH BLOCK LEFT [None]
  - CARDIOPULMONARY FAILURE [None]
  - DECREASED APPETITE [None]
  - ENDOCARDITIS [None]
  - INTERNATIONAL NORMALISED RATIO INCREASED [None]
  - MUSCLE HAEMORRHAGE [None]
  - SEPSIS [None]
